FAERS Safety Report 9642190 (Version 1)
Quarter: 2013Q4

REPORT INFORMATION
  Report Type: Spontaneous
  Country: FR (occurrence: FR)
  Receive Date: 20131024
  Receipt Date: 20131024
  Transmission Date: 20140711
  Serious: Yes (Other)
  Sender: FDA-Public Use
  Company Number: FR-ROCHE-1292446

PATIENT
  Age: 52 Year
  Sex: Male

DRUGS (2)
  1. VEMURAFENIB [Suspect]
     Indication: NODULAR MELANOMA
     Route: 065
     Dates: start: 201204
  2. VEMURAFENIB [Suspect]
     Route: 065

REACTIONS (1)
  - Cyst [Recovered/Resolved]
